FAERS Safety Report 16664985 (Version 2)
Quarter: 2020Q1

REPORT INFORMATION
  Report Type: Spontaneous
  Country: GB (occurrence: GB)
  Receive Date: 20190803
  Receipt Date: 20200225
  Transmission Date: 20200409
  Serious: Yes (Other)
  Sender: FDA-Public Use
  Company Number: GB-SUN PHARMACEUTICAL INDUSTRIES LTD-2019RR-216222

PATIENT
  Age: 19 Year
  Sex: Male
  Weight: 57 kg

DRUGS (2)
  1. RISPERIDONE. [Suspect]
     Active Substance: RISPERIDONE
     Indication: PSYCHOTIC SYMPTOM
     Dosage: 3 MILLIGRAM, UNK
     Route: 048
     Dates: start: 20190412, end: 20190414
  2. MELATONIN [Concomitant]
     Active Substance: MELATONIN
     Indication: INSOMNIA
     Dosage: 4 MILLIGRAM, UNK
     Route: 048
     Dates: start: 2017, end: 2019

REACTIONS (5)
  - Dystonia [Recovered/Resolved]
  - Pain [Recovered/Resolved]
  - Product prescribing error [Recovered/Resolved]
  - Facial spasm [Recovered/Resolved]
  - Agitation [Recovered/Resolved]

NARRATIVE: CASE EVENT DATE: 20190414
